FAERS Safety Report 15786227 (Version 3)
Quarter: 2019Q1

REPORT INFORMATION
  Report Type: Report from Study
  Country: US (occurrence: US)
  Receive Date: 20190103
  Receipt Date: 20190307
  Transmission Date: 20190417
  Serious: Yes (Hospitalization)
  Sender: FDA-Public Use
  Company Number: US-SA-2018SA397399

PATIENT
  Age: 80 Year
  Sex: Female

DRUGS (1)
  1. INSULIN GLARGINE [Suspect]
     Active Substance: INSULIN GLARGINE
     Indication: TYPE 2 DIABETES MELLITUS
     Dosage: 30 U, QD
     Route: 058

REACTIONS (6)
  - Hallucination [Recovered/Resolved]
  - Urinary tract infection [Recovered/Resolved]
  - Gait inability [Not Recovered/Not Resolved]
  - Malaise [Recovered/Resolved]
  - Balance disorder [Not Recovered/Not Resolved]
  - Fall [Unknown]

NARRATIVE: CASE EVENT DATE: 20181216
